FAERS Safety Report 16167734 (Version 1)
Quarter: 2019Q2

REPORT INFORMATION
  Report Type: Spontaneous
  Country: US (occurrence: US)
  Receive Date: 20190302
  Receipt Date: 20190302
  Transmission Date: 20190711
  Serious: Yes (Hospitalization)
  Sender: FDA-Public Use
  Company Number: None

PATIENT
  Age: 38 Year
  Sex: Female
  Weight: 109 kg

DRUGS (17)
  1. METHOTREXATE. [Suspect]
     Active Substance: METHOTREXATE
     Dates: end: 20190201
  2. DAUNORUBICIN [Suspect]
     Active Substance: DAUNORUBICIN
     Dates: end: 20181228
  3. ONCASPAR [Suspect]
     Active Substance: PEGASPARGASE
     Dates: end: 20180531
  4. VINCRISTINE SULFATE. [Suspect]
     Active Substance: VINCRISTINE SULFATE
     Dates: end: 20181228
  5. CYCLOPHOSPHAMIDE. [Suspect]
     Active Substance: CYCLOPHOSPHAMIDE
     Dates: end: 20190104
  6. ACYCLOVIR. [Concomitant]
     Active Substance: ACYCLOVIR
  7. LISINOPRIL. [Concomitant]
     Active Substance: LISINOPRIL
  8. PROCHLORPERAZINE. [Concomitant]
     Active Substance: PROCHLORPERAZINE
  9. ETOPOSIDE (VP-16) [Suspect]
     Active Substance: ETOPOSIDE
     Dates: end: 20190205
  10. GABAPENTIN. [Suspect]
     Active Substance: GABAPENTIN
  11. HYDROCHLOROTHIAZIDE. [Concomitant]
     Active Substance: HYDROCHLOROTHIAZIDE
  12. POTASSIUM CHLORIDE. [Concomitant]
     Active Substance: POTASSIUM CHLORIDE
  13. POSACONAZOLE [Concomitant]
     Active Substance: POSACONAZOLE
  14. CYTARABINE. [Suspect]
     Active Substance: CYTARABINE
     Dates: end: 20190205
  15. MAGNESITUM OXIDE [Concomitant]
  16. ONDANSETRON [Concomitant]
     Active Substance: ONDANSETRON
  17. MERCAPTOPURINE. [Suspect]
     Active Substance: MERCAPTOPURINE
     Dates: end: 20190117

REACTIONS (4)
  - Chills [None]
  - Paranasal sinus discomfort [None]
  - Febrile neutropenia [None]
  - Device related infection [None]

NARRATIVE: CASE EVENT DATE: 20190215
